FAERS Safety Report 18635501 (Version 1)
Quarter: 2020Q4

REPORT INFORMATION
  Report Type: Spontaneous
  Country: US (occurrence: US)
  Receive Date: 20201218
  Receipt Date: 20201218
  Transmission Date: 20210114
  Serious: No
  Sender: FDA-Public Use
  Company Number: US-THERAPEUTICSMD-2020TMD05198

PATIENT
  Sex: Female
  Weight: 50.79 kg

DRUGS (3)
  1. IMVEXXY [Suspect]
     Active Substance: ESTRADIOL
     Indication: VULVOVAGINAL DRYNESS
     Dosage: 4 ?G, 1X/DAY FOR 2 WEEKS
     Route: 067
     Dates: start: 202011
  2. IMVEXXY [Suspect]
     Active Substance: ESTRADIOL
     Indication: VULVOVAGINAL DRYNESS
     Dosage: 10 ?G, 1X/DAY FOR 2 WEEKS
     Route: 067
     Dates: start: 20201020, end: 202011
  3. NEURONTIN [Concomitant]
     Active Substance: GABAPENTIN

REACTIONS (6)
  - Off label use [Unknown]
  - Vulvovaginal pain [Not Recovered/Not Resolved]
  - Vulvovaginal pruritus [Not Recovered/Not Resolved]
  - Vulvovaginal burning sensation [Not Recovered/Not Resolved]
  - Cystitis [Not Recovered/Not Resolved]
  - Product residue present [Not Recovered/Not Resolved]

NARRATIVE: CASE EVENT DATE: 2020
